FAERS Safety Report 4375956-6 (Version None)
Quarter: 2004Q2

REPORT INFORMATION
  Report Type: 
  Country: None (occurrence: None)
  Receive Date: 20040611
  Receipt Date: 20020531
  Transmission Date: 20050107
  Serious: Yes (Hospitalization)
  Sender: FDA-Public Use
  Company Number: US-BRISTOL-MYERS SQUIBB COMPANY-11887874

PATIENT
  Age: 74 Year
  Sex: Male

DRUGS (7)
  1. BMS188667 [Concomitant]
     Dosage: -THIRTEENTH COURSE OF TREATMENT.
     Route: 042
     Dates: start: 20010626, end: 20020522
  2. ETANERCEPT [Suspect]
     Route: 058
     Dates: start: 19990120
  3. CELEBREX [Concomitant]
     Route: 048
     Dates: start: 19990401
  4. ASPIRIN [Concomitant]
  5. DILTIAZEM HCL [Concomitant]
  6. PRILOSEC [Concomitant]
  7. FUROSEMIDE [Concomitant]
     Dates: start: 19990424

REACTIONS (1)
  - LEUKOCYTOCLASTIC VASCULITIS [None]
